APPROVED DRUG PRODUCT: TRAVOPROST
Active Ingredient: TRAVOPROST
Strength: 0.004%
Dosage Form/Route: SOLUTION/DROPS;OPHTHALMIC
Application: A210458 | Product #001
Applicant: ALEMBIC PHARMACEUTICALS LTD
Approved: Dec 20, 2019 | RLD: No | RS: No | Type: DISCN